FAERS Safety Report 24854343 (Version 1)
Quarter: 2025Q1

REPORT INFORMATION
  Report Type: Spontaneous
  Country: US (occurrence: US)
  Receive Date: 20250117
  Receipt Date: 20250117
  Transmission Date: 20250409
  Serious: Yes (Other)
  Sender: AUROBINDO
  Company Number: US-AUROBINDO-AUR-APL-2024-042953

PATIENT
  Age: 53 Year
  Sex: Male

DRUGS (8)
  1. WARFARIN [Suspect]
     Active Substance: WARFARIN
     Indication: Deep vein thrombosis
     Route: 048
  2. WARFARIN [Suspect]
     Active Substance: WARFARIN
     Indication: Pulmonary embolism
     Dosage: 52.5 MILLIGRAM, EVERY WEEK
     Route: 048
  3. WARFARIN [Suspect]
     Active Substance: WARFARIN
     Dosage: 50 MILLIGRAM, EVERY WEEK (WEEKLY WARFARIN DOSE WAS DECREASED BY 5%)
     Route: 048
  4. WARFARIN [Suspect]
     Active Substance: WARFARIN
     Dosage: 45 MILLIGRAM, EVERY WEEK (TOTAL WEEKLY DOSE WAS DECREASED BY 10%)
     Route: 048
  5. WARFARIN [Suspect]
     Active Substance: WARFARIN
     Dosage: 47.5 MILLIGRAM, EVERY WEEK (TOTAL WEEKLY WARFARIN DOSE WAS INCREASED BY 5%)
     Route: 048
  6. ATOVAQUONE [Suspect]
     Active Substance: ATOVAQUONE
     Indication: Pneumocystis jirovecii infection
     Route: 048
  7. ATOVAQUONE [Suspect]
     Active Substance: ATOVAQUONE
     Indication: Pneumonia
  8. ENOXAPARIN SODIUM [Suspect]
     Active Substance: ENOXAPARIN SODIUM
     Indication: Product used for unknown indication
     Dosage: 80 MILLIGRAM, TWO TIMES A DAY
     Route: 058

REACTIONS (2)
  - International normalised ratio increased [Unknown]
  - Treatment noncompliance [Unknown]
